FAERS Safety Report 6316697-5 (Version None)
Quarter: 2009Q3

REPORT INFORMATION
  Report Type: 
  Country: None (occurrence: None)
  Receive Date: 20090820
  Receipt Date: 20090811
  Transmission Date: 20100115
  Serious: Yes (Other)
  Sender: FDA-Public Use
  Company Number: GB-BAXTER-2009BH012713

PATIENT
  Age: 37 Year
  Sex: Male
  Weight: 71 kg

DRUGS (5)
  1. DEXTROSE 5% [Suspect]
     Indication: RECTAL CANCER
     Dosage: DOSE UNIT:UNKNOWN
     Route: 065
     Dates: start: 20090811, end: 20090811
  2. ELOXATIN [Suspect]
     Indication: RECTAL CANCER
     Route: 065
     Dates: start: 20090811, end: 20090811
  3. CAPECITABINE [Concomitant]
     Indication: DRUG USE FOR UNKNOWN INDICATION
     Route: 065
  4. KYTRIL [Concomitant]
     Indication: DRUG USE FOR UNKNOWN INDICATION
     Route: 065
     Dates: start: 20090811
  5. DEXAMETHASONE [Concomitant]
     Indication: DRUG USE FOR UNKNOWN INDICATION
     Route: 065
     Dates: start: 20090811

REACTIONS (1)
  - ANAPHYLACTIC REACTION [None]
